FAERS Safety Report 9835774 (Version 5)
Quarter: 2014Q1

REPORT INFORMATION
  Report Type: Spontaneous
  Country: JP (occurrence: JP)
  Receive Date: 20140122
  Receipt Date: 20140307
  Transmission Date: 20141002
  Serious: Yes (Life-Threatening, Hospitalization, Other)
  Sender: FDA-Public Use
  Company Number: JP-ABBVIE-13P-087-1138867-00

PATIENT
  Age: 51 Year
  Sex: Male
  Weight: 67 kg

DRUGS (6)
  1. HUMIRA [Suspect]
     Indication: CROHN^S DISEASE
     Route: 058
     Dates: start: 20130603, end: 20130603
  2. HUMIRA [Suspect]
  3. HUMIRA [Suspect]
     Dates: start: 20130707, end: 20130812
  4. RIFAMPICIN [Suspect]
  5. MESALAZINE [Concomitant]
     Indication: CROHN^S DISEASE
     Route: 048
     Dates: start: 20130330, end: 20130421
  6. MESALAZINE [Concomitant]
     Dates: start: 20130422, end: 20130812

REACTIONS (12)
  - Asthenia [Unknown]
  - Pyrexia [Unknown]
  - Ascites [Unknown]
  - Crohn^s disease [Unknown]
  - Crohn^s disease [Unknown]
  - Peritoneal tuberculosis [Recovering/Resolving]
  - Inflammation [Unknown]
  - Gastrointestinal oedema [Unknown]
  - Ascites [Unknown]
  - Pulmonary tuberculosis [Recovering/Resolving]
  - Vena cava thrombosis [Recovered/Resolved]
  - Thrombocytopenia [Recovered/Resolved]
